FAERS Safety Report 14690467 (Version 1)
Quarter: 2018Q1

REPORT INFORMATION
  Report Type: Spontaneous
  Country: GB (occurrence: GB)
  Receive Date: 20180328
  Receipt Date: 20180328
  Transmission Date: 20180509
  Serious: Yes (Hospitalization, Disabling, Congenital Anomaly, Other)
  Sender: FDA-Public Use
  Company Number: GB-TEVA-2018-GB-875113

PATIENT
  Sex: Female

DRUGS (1)
  1. VALPROATE SODIUM. [Suspect]
     Active Substance: VALPROATE SODIUM
     Route: 064

REACTIONS (13)
  - Foetal anticonvulsant syndrome [Unknown]
  - Autism spectrum disorder [Unknown]
  - Speech disorder developmental [Unknown]
  - Speech disorder [Unknown]
  - Malaise [Unknown]
  - Dyspnoea [Unknown]
  - Cardiac disorder [Unknown]
  - Learning disorder [Unknown]
  - Urinary incontinence [Unknown]
  - Foetal exposure during pregnancy [Unknown]
  - Premature baby [Unknown]
  - Developmental delay [Unknown]
  - Impaired quality of life [Unknown]
